FAERS Safety Report 20394538 (Version 1)
Quarter: 2022Q1

REPORT INFORMATION
  Report Type: Spontaneous
  Country: IT (occurrence: IT)
  Receive Date: 20220129
  Receipt Date: 20220129
  Transmission Date: 20220424
  Serious: Yes (Life-Threatening)
  Sender: FDA-Public Use
  Company Number: None

PATIENT
  Age: 44 Year
  Sex: Male

DRUGS (5)
  1. METFORMIN [Suspect]
     Active Substance: METFORMIN HYDROCHLORIDE
     Indication: Diabetes mellitus
     Dosage: 850 MG, QD (CUMULATIVE DOSE: 3728950, OVERDOSE)
     Route: 048
     Dates: start: 20100101, end: 20220104
  2. METFORMIN HYDROCHLORIDE\VILDAGLIPTIN [Suspect]
     Active Substance: METFORMIN HYDROCHLORIDE\VILDAGLIPTIN
     Indication: Diabetes mellitus
     Dosage: 2 DOSAGE FORM, QD (CUMULATIVE DOSE: 2200, OVERDOSE)
     Route: 048
     Dates: start: 20190101, end: 20220104
  3. VALPROIC ACID [Concomitant]
     Active Substance: VALPROIC ACID
     Indication: Bipolar disorder
     Dosage: 100 MG
     Route: 065
  4. LITHIUM [Concomitant]
     Active Substance: LITHIUM
     Indication: Bipolar disorder
     Dosage: 300 MG
     Route: 048
  5. RISPERDAL [Concomitant]
     Active Substance: RISPERIDONE
     Indication: Schizophrenia
     Dosage: 4 MG
     Route: 048

REACTIONS (3)
  - Nausea [Recovering/Resolving]
  - Vomiting [Recovering/Resolving]
  - Metabolic acidosis [Recovering/Resolving]

NARRATIVE: CASE EVENT DATE: 20220104
